FAERS Safety Report 9796382 (Version 1)
Quarter: 2014Q1

REPORT INFORMATION
  Report Type: Spontaneous
  Country: FR (occurrence: FR)
  Receive Date: 20140103
  Receipt Date: 20140103
  Transmission Date: 20141002
  Serious: Yes (Hospitalization)
  Sender: FDA-Public Use
  Company Number: FR-TEVA-452504ISR

PATIENT
  Age: 67 Year
  Sex: Male

DRUGS (4)
  1. OXALIPLATINE TEVA 5MG/ML [Suspect]
     Indication: COLORECTAL ADENOCARCINOMA
     Route: 042
     Dates: start: 20131122, end: 20131122
  2. FLUOROURACILE [Concomitant]
     Indication: COLORECTAL ADENOCARCINOMA
     Route: 042
     Dates: start: 20131122
  3. FOLINATE DE CALCIUM [Concomitant]
     Indication: COLORECTAL ADENOCARCINOMA
     Route: 042
     Dates: start: 20131122
  4. AVASTIN 25MG/ML [Concomitant]
     Indication: COLORECTAL ADENOCARCINOMA
     Route: 042
     Dates: start: 20131122

REACTIONS (3)
  - Hypotension [Recovered/Resolved]
  - Erythema [Recovered/Resolved]
  - Loss of consciousness [Recovered/Resolved]
